FAERS Safety Report 20609547 (Version 1)
Quarter: 2022Q1

REPORT INFORMATION
  Report Type: Spontaneous
  Country: FR (occurrence: FR)
  Receive Date: 20220318
  Receipt Date: 20220318
  Transmission Date: 20220424
  Serious: Yes (Hospitalization)
  Sender: FDA-Public Use
  Company Number: None

PATIENT
  Age: 49 Year
  Sex: Female
  Weight: 88 kg

DRUGS (2)
  1. ESTRADIOL [Suspect]
     Active Substance: ESTRADIOL
     Indication: Oestrogen deficiency
     Dosage: 1 DOSAGE FORMS DAILY;
     Route: 003
     Dates: end: 20220203
  2. DESOGESTREL [Suspect]
     Active Substance: DESOGESTREL
     Indication: Hormonal contraception
     Dosage: 1 DOSAGE FORMS DAILY; OPTIMIZETTE 75 MICROGRAMMES, COMPRIME PELLICULE
     Route: 048
     Dates: end: 20220203

REACTIONS (1)
  - Ischaemic stroke [Recovering/Resolving]

NARRATIVE: CASE EVENT DATE: 20211201
